FAERS Safety Report 21567535 (Version 2)
Quarter: 2022Q4

REPORT INFORMATION
  Report Type: Spontaneous
  Country: BE (occurrence: BE)
  Receive Date: 20221108
  Receipt Date: 20221113
  Transmission Date: 20230112
  Serious: Yes (Disabling)
  Sender: FDA-Public Use
  Company Number: None

PATIENT
  Age: 54 Year
  Sex: Female
  Weight: 59 kg

DRUGS (5)
  1. SPORANOX [Suspect]
     Active Substance: ITRACONAZOLE
     Indication: Onychomycosis
     Dosage: 1X / DAY IN THE MORNING (AFTER BREAKFAST)
     Route: 048
     Dates: start: 20210401, end: 20210519
  2. ETILEFRINE HYDROCHLORIDE [Concomitant]
     Active Substance: ETILEFRINE HYDROCHLORIDE
  3. SIMVASTATIN [Concomitant]
     Active Substance: SIMVASTATIN
  4. NOBITEN [NEBIVOLOL] [Concomitant]
  5. ESCITALOPRAM OXALATE [Concomitant]
     Active Substance: ESCITALOPRAM OXALATE

REACTIONS (8)
  - Oedema peripheral [Recovered/Resolved]
  - Localised oedema [Recovered/Resolved]
  - Cardiac discomfort [Recovered/Resolved]
  - Contraindicated product administered [Not Recovered/Not Resolved]
  - Negative thoughts [Recovered/Resolved]
  - Pain in extremity [Recovered/Resolved]
  - Pollakiuria [Not Recovered/Not Resolved]
  - Generalised oedema [Recovered/Resolved]

NARRATIVE: CASE EVENT DATE: 20210430
